FAERS Safety Report 8067789-4 (Version None)
Quarter: 2012Q1

REPORT INFORMATION
  Report Type: 
  Country: None (occurrence: None)
  Receive Date: 20120124
  Receipt Date: 20120113
  Transmission Date: 20120608
  Serious: Yes (Other)
  Sender: FDA-Public Use
  Company Number: US-ASTRAZENECA-2012SE02984

PATIENT
  Age: 69 Year
  Sex: Female

DRUGS (2)
  1. PRILOSEC [Suspect]
     Route: 048
  2. NEXIUM [Suspect]
     Indication: GASTRIC DISORDER
     Route: 048

REACTIONS (3)
  - ADVERSE DRUG REACTION [None]
  - CARDIAC FAILURE CONGESTIVE [None]
  - DRUG PRESCRIBING ERROR [None]
